FAERS Safety Report 10380167 (Version 2)
Quarter: 2014Q3

REPORT INFORMATION
  Report Type: Spontaneous
  Country: US (occurrence: US)
  Receive Date: 20140813
  Receipt Date: 20140902
  Transmission Date: 20150326
  Serious: Yes (Other)
  Sender: FDA-Public Use
  Company Number: US-AMGEN INC.-USASP2014060143

PATIENT
  Age: 51 Year
  Sex: Female
  Weight: 82.99 kg

DRUGS (5)
  1. MULTIVITAMIN                       /00097801/ [Concomitant]
     Active Substance: VITAMINS
     Dosage: UNK
     Route: 048
  2. ENBREL [Suspect]
     Active Substance: ETANERCEPT
     Indication: RHEUMATOID ARTHRITIS
     Dosage: 50 MG, QWK
     Route: 058
     Dates: start: 20130531, end: 20140616
  3. METHOTREXATE [Concomitant]
     Active Substance: METHOTREXATE
     Dosage: 2.5 MG, UNK
     Route: 048
  4. ZYRTEC [Concomitant]
     Active Substance: CETIRIZINE HYDROCHLORIDE
     Dosage: 10 MG, UNK
     Route: 048
  5. FOLIC ACID. [Concomitant]
     Active Substance: FOLIC ACID
     Dosage: UNK
     Route: 048

REACTIONS (2)
  - Rheumatoid arthritis [Unknown]
  - Drug effect decreased [Unknown]

NARRATIVE: CASE EVENT DATE: 20140705
